FAERS Safety Report 10462103 (Version 1)
Quarter: 2014Q3

REPORT INFORMATION
  Report Type: Spontaneous
  Country: US (occurrence: US)
  Receive Date: 20140918
  Receipt Date: 20140918
  Transmission Date: 20150326
  Serious: No
  Sender: FDA-Public Use
  Company Number: US-ALLERGAN-1313600US

PATIENT
  Age: 45 Year
  Sex: Female

DRUGS (2)
  1. VANIQA [Suspect]
     Active Substance: EFLORNITHINE HYDROCHLORIDE
     Indication: HAIR GROWTH ABNORMAL
     Dosage: UNK, BID
     Route: 061
     Dates: start: 201303, end: 201308
  2. LEVOTHYROXINE [Concomitant]
     Active Substance: LEVOTHYROXINE
     Indication: HYPOTHYROIDISM
     Dosage: 0.075 MG, QD
     Route: 048

REACTIONS (5)
  - Application site warmth [Recovered/Resolved]
  - Application site pain [Recovered/Resolved]
  - Drug ineffective [Unknown]
  - Application site erythema [Recovered/Resolved]
  - Rash [Not Recovered/Not Resolved]
